FAERS Safety Report 9259171 (Version 1)
Quarter: 2013Q2

REPORT INFORMATION
  Report Type: Spontaneous
  Country: IT (occurrence: IT)
  Receive Date: 20130426
  Receipt Date: 20130426
  Transmission Date: 20140414
  Serious: Yes (Life-Threatening)
  Sender: FDA-Public Use
  Company Number: IT-ASTRAZENECA-2013SE28038

PATIENT
  Age: 82 Year
  Sex: Female

DRUGS (3)
  1. BRILIQUE [Suspect]
     Route: 048
     Dates: start: 20130419
  2. ASA [Suspect]
  3. HEPARIN [Suspect]

REACTIONS (2)
  - Coma [Unknown]
  - Cerebral haemorrhage [Not Recovered/Not Resolved]
